FAERS Safety Report 9855573 (Version 9)
Quarter: 2015Q4

REPORT INFORMATION
  Report Type: Report from Study
  Country: FR (occurrence: FR)
  Receive Date: 20140130
  Receipt Date: 20151229
  Transmission Date: 20160305
  Serious: Yes (Other)
  Sender: FDA-Public Use
  Company Number: PHHY2013FR147143

PATIENT
  Age: 33 Year
  Sex: Male
  Weight: 74 kg

DRUGS (3)
  1. ILARIS [Suspect]
     Active Substance: CANAKINUMAB
     Indication: CRYOPYRIN ASSOCIATED PERIODIC SYNDROME
     Dosage: 150 MG, EVERY 6 WEEKS
     Route: 058
     Dates: start: 20100901
  2. DOLIPRANE [Concomitant]
     Active Substance: ACETAMINOPHEN
     Indication: HEADACHE
     Dosage: 1000 MG, QD
     Route: 048
     Dates: start: 20131115, end: 20131115
  3. ILARIS [Suspect]
     Active Substance: CANAKINUMAB
     Indication: MUCKLE-WELLS SYNDROME

REACTIONS (10)
  - Cryopyrin associated periodic syndrome [Recovered/Resolved]
  - Injection site reaction [Not Recovered/Not Resolved]
  - Vertigo [Not Recovered/Not Resolved]
  - Product reconstitution issue [Unknown]
  - Fatigue [Unknown]
  - Injection site induration [Recovered/Resolved]
  - Ligament sprain [Recovered/Resolved]
  - Hand fracture [Recovered/Resolved]
  - Injection site haematoma [Recovered/Resolved]
  - Drug ineffective [Unknown]

NARRATIVE: CASE EVENT DATE: 20131101
